FAERS Safety Report 11543667 (Version 10)
Quarter: 2016Q1

REPORT INFORMATION
  Report Type: Spontaneous
  Country: AU (occurrence: AU)
  Receive Date: 20150924
  Receipt Date: 20160327
  Transmission Date: 20160525
  Serious: Yes (Hospitalization, Other)
  Sender: FDA-Public Use
  Company Number: AU-AMGEN-AUSSP2015098125

PATIENT
  Age: 24 Year
  Sex: Female
  Weight: 70 kg

DRUGS (4)
  1. LENOGRASTIM [Suspect]
     Active Substance: LENOGRASTIM
     Indication: INFANTILE GENETIC AGRANULOCYTOSIS
     Dosage: UNK
     Route: 065
  2. NEUPOGEN [Suspect]
     Active Substance: FILGRASTIM
     Indication: INFANTILE GENETIC AGRANULOCYTOSIS
     Dosage: 300 MCG, QD
     Route: 058
  3. PREDNISOLONE. [Concomitant]
     Active Substance: PREDNISOLONE
     Dosage: 20 MG, QD
     Route: 048
     Dates: start: 20150914
  4. NEULASTA [Suspect]
     Active Substance: PEGFILGRASTIM
     Indication: INFANTILE GENETIC AGRANULOCYTOSIS
     Dosage: UNK, EVERY 7-8 DAYS FOR AROUND 10 TO12 YEARS
     Route: 065
     Dates: start: 2004, end: 2015

REACTIONS (20)
  - Gingival ulceration [Unknown]
  - Haemoglobin abnormal [Unknown]
  - Gingival hypertrophy [Unknown]
  - Herpes simplex [Unknown]
  - Abasia [Not Recovered/Not Resolved]
  - Acute myeloid leukaemia [Unknown]
  - Antibody test positive [Unknown]
  - Arthralgia [Not Recovered/Not Resolved]
  - Gene mutation [Unknown]
  - Candida infection [Unknown]
  - Hospitalisation [Not Recovered/Not Resolved]
  - No therapeutic response [Unknown]
  - Bone pain [Recovering/Resolving]
  - Neutropenia [Not Recovered/Not Resolved]
  - Bone marrow transplant [Unknown]
  - Platelet count abnormal [Unknown]
  - Pregnancy [Recovered/Resolved]
  - Drug effect decreased [Not Recovered/Not Resolved]
  - Reticulin increased [Unknown]
  - Premature delivery [Recovered/Resolved]

NARRATIVE: CASE EVENT DATE: 2015
